FAERS Safety Report 17551930 (Version 1)
Quarter: 2020Q1

REPORT INFORMATION
  Report Type: Spontaneous
  Country: DE (occurrence: DE)
  Receive Date: 20200317
  Receipt Date: 20200317
  Transmission Date: 20200409
  Serious: Yes (Hospitalization)
  Sender: FDA-Public Use
  Company Number: NVSC2020DE075751

PATIENT
  Age: 64 Year
  Sex: Male

DRUGS (1)
  1. TISAGENLECLEUCEL. [Suspect]
     Active Substance: TISAGENLECLEUCEL
     Indication: DIFFUSE LARGE B-CELL LYMPHOMA RECURRENT
     Dosage: UNK
     Route: 065

REACTIONS (8)
  - Shock [Unknown]
  - Hypotension [Unknown]
  - Encephalopathy [Unknown]
  - Dyspnoea [Unknown]
  - Cytokine release syndrome [Recovering/Resolving]
  - Pyrexia [Unknown]
  - Capillary leak syndrome [Unknown]
  - Tachycardia [Unknown]
